FAERS Safety Report 8058338-5 (Version None)
Quarter: 2012Q1

REPORT INFORMATION
  Report Type: 
  Country: None (occurrence: None)
  Receive Date: 20120120
  Receipt Date: 20120111
  Transmission Date: 20120608
  Serious: Yes (Hospitalization)
  Sender: FDA-Public Use
  Company Number: FR-JNJFOC-20120104433

PATIENT
  Age: 79 Year
  Sex: Male

DRUGS (9)
  1. INFLIXIMAB, RECOMBINANT [Suspect]
     Indication: CROHN'S DISEASE
     Dosage: TOTAL OF 3 INFLIXIMAB INFUSIONS
     Route: 042
     Dates: start: 20110618
  2. INFLIXIMAB, RECOMBINANT [Suspect]
     Route: 042
     Dates: start: 20110803, end: 20110901
  3. INDAPAMIDE [Concomitant]
     Indication: HYPERTENSION
     Dates: end: 20111220
  4. IMURAN [Concomitant]
     Indication: CROHN'S DISEASE
     Dates: start: 20061201, end: 20110601
  5. DILTIAZEM HCL [Concomitant]
     Indication: HYPERTENSION
  6. FLAGYL [Concomitant]
     Indication: ILEITIS
     Dates: start: 20110616, end: 20120101
  7. OFLOXACIN [Concomitant]
     Indication: ILEITIS
     Dates: start: 20110616, end: 20120101
  8. INFLIXIMAB, RECOMBINANT [Suspect]
     Route: 042
     Dates: start: 20110704
  9. HYDROCORTISONE [Concomitant]
     Indication: PREMEDICATION
     Dates: start: 20110618, end: 20110803

REACTIONS (4)
  - DEHYDRATION [None]
  - PSORIASIS [None]
  - MALNUTRITION [None]
  - RENAL FAILURE ACUTE [None]
